FAERS Safety Report 22176360 (Version 2)
Quarter: 2023Q2

REPORT INFORMATION
  Report Type: Spontaneous
  Country: US (occurrence: US)
  Receive Date: 20230405
  Receipt Date: 20230414
  Transmission Date: 20230721
  Serious: No
  Sender: FDA-Public Use
  Company Number: US-GSKCCFUS-Case-01663880_AE-93917

PATIENT
  Sex: Female

DRUGS (1)
  1. BREO ELLIPTA [Suspect]
     Active Substance: FLUTICASONE FUROATE\VILANTEROL TRIFENATATE
     Indication: Asthma
     Dosage: UNK, 200/25MCG 30D
     Dates: end: 20230325

REACTIONS (4)
  - Dyspnoea [Not Recovered/Not Resolved]
  - Drug ineffective [Unknown]
  - Inappropriate schedule of product administration [Unknown]
  - Product complaint [Unknown]
